FAERS Safety Report 7507486-4 (Version None)
Quarter: 2011Q2

REPORT INFORMATION
  Report Type: 
  Country: None (occurrence: None)
  Receive Date: 20110526
  Receipt Date: 20110511
  Transmission Date: 20111010
  Serious: No
  Sender: FDA-Public Use
  Company Number: US-MYLANLABS-2011S1008237

PATIENT
  Age: 66 Year
  Sex: Female
  Weight: 136.99 kg

DRUGS (1)
  1. VALACYCLOVIR HYDROCHLORIDE [Suspect]
     Indication: HERPES SIMPLEX
     Route: 048

REACTIONS (3)
  - VENTRICULAR EXTRASYSTOLES [None]
  - TACHYCARDIA [None]
  - SUPRAVENTRICULAR EXTRASYSTOLES [None]
